FAERS Safety Report 9642873 (Version 1)
Quarter: 2013Q4

REPORT INFORMATION
  Report Type: Spontaneous
  Country: FI (occurrence: JP)
  Receive Date: 20131024
  Receipt Date: 20131024
  Transmission Date: 20140711
  Serious: Yes (Disabling)
  Sender: FDA-Public Use
  Company Number: FI-UPSHER-SMITH LABORATORIES, INC.-13003641

PATIENT
  Sex: Female

DRUGS (1)
  1. DIVIGEL [Suspect]
     Indication: MENOPAUSAL SYMPTOMS
     Dosage: UNK, UNK
     Route: 062

REACTIONS (1)
  - Thrombophlebitis [Not Recovered/Not Resolved]
